FAERS Safety Report 9970737 (Version 1)
Quarter: 2014Q1

REPORT INFORMATION
  Report Type: Spontaneous
  Country: US (occurrence: None)
  Receive Date: 20140305
  Receipt Date: 20140305
  Transmission Date: 20141002
  Serious: Yes (Hospitalization, Other)
  Sender: FDA-Public Use
  Company Number: None

PATIENT
  Age: 48 Year
  Sex: Female

DRUGS (1)
  1. APRESOLINE [Suspect]
     Indication: HYPERTENSION
     Dosage: 20 MG 1ST DOSE, 10 MG 2ND DOS, 2 DOSES WITHIN 1 H, INTO A VEIN
     Route: 042
     Dates: start: 20140224, end: 20140224

REACTIONS (7)
  - Palpitations [None]
  - Chest discomfort [None]
  - Chest pain [None]
  - Dyspnoea [None]
  - Hypoaesthesia [None]
  - Paraesthesia [None]
  - Flushing [None]
